FAERS Safety Report 4784731-X (Version None)
Quarter: 2005Q3

REPORT INFORMATION
  Report Type: 
  Country: None (occurrence: None)
  Receive Date: 20050930
  Receipt Date: 20050610
  Transmission Date: 20060218
  Serious: Yes (Other)
  Sender: FDA-Public Use
  Company Number: NL-ROCHE-407220

PATIENT
  Sex: Female

DRUGS (1)
  1. BONDRONAT [Suspect]
     Indication: OSTEOPOROSIS PROPHYLAXIS
     Dosage: STOPPED FOR ONE WEEK, THEN RESTARTED ON 11 JUN 05. STOPPED ON AN UNSPECIFIED DATE. RESTARTED IN AUG+
     Route: 048
     Dates: end: 20050815

REACTIONS (1)
  - MIGRAINE [None]
